FAERS Safety Report 8484971-2 (Version None)
Quarter: 2012Q3

REPORT INFORMATION
  Report Type: 
  Country: None (occurrence: None)
  Receive Date: 20120703
  Receipt Date: 20120627
  Transmission Date: 20120928
  Serious: Yes (Other)
  Sender: FDA-Public Use
  Company Number: US-PFIZER INC-2012155878

PATIENT
  Sex: Female
  Weight: 60.771 kg

DRUGS (2)
  1. LIPITOR [Suspect]
     Indication: CARDIAC DISORDER
     Dosage: 10 MG, DAILY
  2. LIPITOR [Suspect]
     Indication: ARTERIAL DISORDER

REACTIONS (2)
  - BLOOD CHOLESTEROL INCREASED [None]
  - STRESS [None]
